FAERS Safety Report 8323376-1 (Version None)
Quarter: 2012Q2

REPORT INFORMATION
  Report Type: 
  Country: None (occurrence: None)
  Receive Date: 20120430
  Receipt Date: 20120426
  Transmission Date: 20120825
  Serious: Yes (Hospitalization)
  Sender: FDA-Public Use
  Company Number: DE-MERCK-1204DEU00095

PATIENT
  Age: 62 Year
  Sex: Male

DRUGS (1)
  1. VYTORIN [Suspect]
     Indication: LOW DENSITY LIPOPROTEIN INCREASED
     Route: 048
     Dates: start: 20020101, end: 20050101

REACTIONS (2)
  - CALCULUS PROSTATIC [None]
  - CHOLELITHIASIS [None]
